FAERS Safety Report 8041951-9 (Version None)
Quarter: 2012Q1

REPORT INFORMATION
  Report Type: 
  Country: None (occurrence: None)
  Receive Date: 20120112
  Receipt Date: 20120110
  Transmission Date: 20120608
  Serious: Yes (Death, Other)
  Sender: FDA-Public Use
  Company Number: PHEH2012US000907

PATIENT
  Sex: Male

DRUGS (3)
  1. EXJADE [Suspect]
     Indication: ANAEMIA
     Dosage: 500 MG, QID
     Route: 048
     Dates: start: 20110301
  2. TOPROL-XL [Concomitant]
  3. ASA TABS [Concomitant]

REACTIONS (5)
  - NEOPLASM PROGRESSION [None]
  - NEOPLASM MALIGNANT [None]
  - FATIGUE [None]
  - WEIGHT DECREASED [None]
  - DEATH [None]
